FAERS Safety Report 15849445 (Version 1)
Quarter: 2019Q1

REPORT INFORMATION
  Report Type: Spontaneous
  Country: US (occurrence: US)
  Receive Date: 20190121
  Receipt Date: 20190121
  Transmission Date: 20190417
  Serious: No
  Sender: FDA-Public Use
  Company Number: PHEH2018US055900

PATIENT
  Sex: Female

DRUGS (1)
  1. TASIGNA [Suspect]
     Active Substance: NILOTINIB
     Indication: CHRONIC MYELOID LEUKAEMIA
     Dosage: 200 MG/KG, QD
     Route: 048
     Dates: start: 20140615

REACTIONS (3)
  - Muscle spasms [Not Recovered/Not Resolved]
  - Anaemia [Unknown]
  - Pain [Not Recovered/Not Resolved]
